FAERS Safety Report 19560809 (Version 1)
Quarter: 2021Q3

REPORT INFORMATION
  Report Type: Spontaneous
  Country: US (occurrence: US)
  Receive Date: 20210714
  Receipt Date: 20210714
  Transmission Date: 20211014
  Serious: No
  Sender: FDA-Public Use
  Company Number: US-MISSION PHARMACAL COMPANY-2113824

PATIENT
  Age: 50 Year
  Sex: Male

DRUGS (1)
  1. THIOLA EC [Suspect]
     Active Substance: TIOPRONIN
     Indication: CYSTINURIA
     Route: 048
     Dates: start: 20210528

REACTIONS (4)
  - Hyposmia [Unknown]
  - Dry mouth [Unknown]
  - Ageusia [Unknown]
  - Lip dry [Unknown]
